FAERS Safety Report 5571251-8 (Version None)
Quarter: 2007Q4

REPORT INFORMATION
  Report Type: 
  Country: None (occurrence: None)
  Receive Date: 20071221
  Receipt Date: 20070321
  Transmission Date: 20080405
  Serious: No
  Sender: FDA-Public Use
  Company Number: A0644467A

PATIENT
  Age: 74 Year
  Sex: Male

DRUGS (11)
  1. FLONASE [Suspect]
     Indication: SEASONAL ALLERGY
     Dosage: 4SPR PER DAY
     Route: 045
  2. FLUTICASONE PROPIONATE [Suspect]
     Indication: SEASONAL ALLERGY
     Dosage: 4SPR PER DAY
     Route: 045
  3. ARICEPT [Concomitant]
     Route: 048
  4. FLOMAX [Concomitant]
  5. PAROXETINE [Concomitant]
  6. CRESTOR [Concomitant]
  7. WELLBUTRIN [Concomitant]
  8. MULTIVITAMINS WITH MINERALS [Concomitant]
  9. SAW PALMETTO [Concomitant]
  10. FLAXSEED OIL [Concomitant]
  11. CIALIS [Concomitant]

REACTIONS (6)
  - ASTHENIA [None]
  - DYSPNOEA EXERTIONAL [None]
  - INCREASED UPPER AIRWAY SECRETION [None]
  - NASAL DRYNESS [None]
  - PAIN [None]
  - RHINORRHOEA [None]
